FAERS Safety Report 17344251 (Version 1)
Quarter: 2020Q1

REPORT INFORMATION
  Report Type: Spontaneous
  Country: US (occurrence: US)
  Receive Date: 20200129
  Receipt Date: 20200129
  Transmission Date: 20200409
  Serious: No
  Sender: FDA-Public Use
  Company Number: US-ALLERGAN-1928956US

PATIENT
  Age: 43 Year
  Sex: Female

DRUGS (3)
  1. BEE VENOM [Concomitant]
     Active Substance: APIS MELLIFERA VENOM
     Indication: SKIN WRINKLING
     Dosage: UNK
  2. BOTOX COSMETIC [Suspect]
     Active Substance: ONABOTULINUMTOXINA
     Indication: SKIN WRINKLING
     Dosage: 20 UNITS, SINGLE
     Dates: start: 201902, end: 201902
  3. SNAIL SLIME CREAM [Concomitant]
     Indication: SKIN WRINKLING
     Dosage: UNK

REACTIONS (3)
  - Drug ineffective [Unknown]
  - Skin hypertrophy [Unknown]
  - Product use complaint [Unknown]

NARRATIVE: CASE EVENT DATE: 201902
